FAERS Safety Report 7321629-7 (Version None)
Quarter: 2011Q1

REPORT INFORMATION
  Report Type: 
  Country: None (occurrence: None)
  Receive Date: 20110228
  Receipt Date: 20100921
  Transmission Date: 20110831
  Serious: No
  Sender: FDA-Public Use
  Company Number: A0883143A

PATIENT
  Age: 57 Year
  Sex: Female

DRUGS (1)
  1. VALTREX [Suspect]
     Route: 065

REACTIONS (1)
  - ABDOMINAL DISCOMFORT [None]
